FAERS Safety Report 8026760-9 (Version None)
Quarter: 2012Q1

REPORT INFORMATION
  Report Type: 
  Country: None (occurrence: None)
  Receive Date: 20120106
  Receipt Date: 20111228
  Transmission Date: 20120608
  Serious: No
  Sender: FDA-Public Use
  Company Number: US-BIOGENIDEC-2011BI048930

PATIENT
  Age: 34 Year
  Sex: Male

DRUGS (3)
  1. COPAXONE [Concomitant]
     Indication: PRODUCT USED FOR UNKNOWN INDICATION
  2. AVONEX [Suspect]
     Indication: MULTIPLE SCLEROSIS
     Route: 030
     Dates: start: 20050303, end: 20100517
  3. AVONEX [Suspect]
     Route: 030
     Dates: end: 20050501

REACTIONS (4)
  - INFLUENZA LIKE ILLNESS [None]
  - PRURITUS [None]
  - RASH PAPULAR [None]
  - PAIN [None]
